FAERS Safety Report 25872505 (Version 1)
Quarter: 2025Q4

REPORT INFORMATION
  Report Type: Report from Study
  Country: PK (occurrence: PK)
  Receive Date: 20251002
  Receipt Date: 20251002
  Transmission Date: 20260118
  Serious: Yes (Other)
  Sender: ROCHE
  Company Number: PK-ROCHE-10000396025

PATIENT
  Age: 69 Year
  Sex: Male

DRUGS (1)
  1. TECENTRIQ [Suspect]
     Active Substance: ATEZOLIZUMAB
     Indication: Non-small cell lung cancer
     Route: 042
     Dates: start: 20240819

REACTIONS (9)
  - Dizziness [Unknown]
  - Loss of consciousness [Unknown]
  - Pertussis [Unknown]
  - Haemoptysis [Unknown]
  - Haematological malignancy [Unknown]
  - Epistaxis [Unknown]
  - Hydrocephalus [Unknown]
  - Bedridden [Unknown]
  - Disease progression [Unknown]

NARRATIVE: CASE EVENT DATE: 20250701
